FAERS Safety Report 9800374 (Version 1)
Quarter: 2014Q1

REPORT INFORMATION
  Report Type: Spontaneous
  Country: FR (occurrence: FR)
  Receive Date: 20140106
  Receipt Date: 20140106
  Transmission Date: 20141002
  Serious: Yes (Hospitalization)
  Sender: FDA-Public Use
  Company Number: FR-ROCHE-1329055

PATIENT
  Age: 51 Year
  Sex: Male

DRUGS (12)
  1. CELLCEPT [Suspect]
     Indication: RENAL TRANSPLANT
     Route: 048
     Dates: end: 20130814
  2. ESIDREX [Suspect]
     Indication: PRODUCT USED FOR UNKNOWN INDICATION
     Route: 048
     Dates: end: 20130814
  3. TRIATEC (FRANCE) [Suspect]
     Indication: PRODUCT USED FOR UNKNOWN INDICATION
     Route: 048
     Dates: start: 2012, end: 20130814
  4. INIPOMP [Concomitant]
     Route: 048
  5. MYFORTIC [Concomitant]
  6. AMLOR [Concomitant]
     Dosage: DAILY
     Route: 065
  7. SOLUPRED (FRANCE) [Concomitant]
     Dosage: DAILY
     Route: 065
  8. ADENURIC [Concomitant]
     Dosage: DAILY
     Route: 065
  9. ALLOPURINOL [Concomitant]
     Route: 048
     Dates: end: 20130814
  10. PROGRAF [Concomitant]
     Route: 048
  11. ARANESP [Concomitant]
     Route: 065
  12. TENORMINE [Concomitant]
     Dosage: DAILY
     Route: 065

REACTIONS (2)
  - Anaemia [Recovered/Resolved]
  - Macrocytosis [Recovering/Resolving]
